FAERS Safety Report 9095735 (Version 1)
Quarter: 2013Q1

REPORT INFORMATION
  Report Type: Spontaneous
  Country: GB (occurrence: None)
  Receive Date: 20130124
  Receipt Date: 20130124
  Transmission Date: 20140127
  Serious: Yes (Life-Threatening, Hospitalization)
  Sender: FDA-Public Use
  Company Number: 2013-00767

PATIENT
  Age: 91 Year
  Sex: 0

DRUGS (20)
  1. CIPROFLOXACIN HYDROCHLORIDE (UNKNOWN) [Suspect]
     Route: 048
     Dates: start: 20110325, end: 20110329
  2. LEVOFLOXACIN [Suspect]
     Dates: start: 20110218, end: 20110225
  3. LEVOFLOXACIN [Suspect]
     Dates: start: 20110218, end: 20110225
  4. DOXYCYCLINE (UNKNOWN) [Suspect]
     Route: 048
     Dates: start: 20100804
  5. FLUCLOXACILLIN (FLUCLOXACILLIN) [Suspect]
     Route: 048
     Dates: start: 20090710, end: 20090715
  6. CIPROFLOXACIN (CIPROFLOXACIN) [Suspect]
     Route: 042
     Dates: start: 20110324
  7. ERTAPENEM (ERTAPENEM) [Suspect]
     Route: 042
     Dates: start: 20110330, end: 20110331
  8. BENZYLPENICILLIN [Suspect]
     Dates: start: 20110218
  9. UNIPHYLLIN CONTINUS (THEOPHYLLINE) [Concomitant]
  10. THIAMINE (THIAMINE) [Concomitant]
  11. VITAMIN B COMPOUND /00003501/ (CALCIUM PANTOTHENATE, NICOTINAMIDE, PYRIDOXINE HYDROCHLORIDE, RIBOFLAVIN, THIAMINE HYDROCHLORIDE) [Concomitant]
  12. ADCAL D3 (CALCIUM CARBONATE, COLECALCIFEROL) [Concomitant]
  13. IPRATROPIUM BROMIDE (IPRATROPIUM BROMIDE) [Concomitant]
  14. SALBUTAMOL (SALBUTAMOL) [Concomitant]
  15. PARACETAMOL (PARACETAMOL) [Concomitant]
  16. QUETIAPINE (QUETIAPINE) [Concomitant]
  17. ATORVASTATIN (ATORVASTATIN) [Concomitant]
  18. ASPIRIN (ACETYLSALICYLIC ACID) [Concomitant]
  19. SENNA /00142201/ (SENNA ALEXANDRINA) [Concomitant]
  20. BUMETANIDE (BUMETANIDE) [Concomitant]

REACTIONS (7)
  - Clostridial infection [None]
  - Pneumonia [None]
  - Confusional state [None]
  - Dysuria [None]
  - Hypotension [None]
  - Urosepsis [None]
  - Diarrhoea [None]
